FAERS Safety Report 8510927-7 (Version None)
Quarter: 2012Q2

REPORT INFORMATION
  Report Type: 
  Country: None (occurrence: None)
  Receive Date: 20120406
  Receipt Date: 20120202
  Transmission Date: 20120825
  Serious: Yes (Hospitalization)
  Sender: FDA-Public Use
  Company Number: US-CYPR-2012-000001

PATIENT
  Sex: Female
  Weight: 47.1741 kg

DRUGS (21)
  1. NOVOLOG [Concomitant]
  2. WARFARIN SODIUM [Concomitant]
  3. COREG [Concomitant]
  4. LISINOPRIL [Concomitant]
  5. ASPIRIN [Suspect]
     Indication: CORONARY ARTERY DISEASE
     Dosage: 81 MG ORAL
     Route: 048
     Dates: start: 20010101
  6. AMIODARONE HCL [Concomitant]
  7. CYPER STENT (1) [Concomitant]
  8. CYPHER STENT (3) [Concomitant]
  9. LASIX [Concomitant]
  10. ZOCOR [Concomitant]
  11. CYPHER STENT (2) [Concomitant]
  12. TRAZODONE HYDROCHLORIDE [Concomitant]
  13. OMEPRAZOLE [Concomitant]
  14. METFORMIN HYDROCHLORIDE [Concomitant]
  15. SYMBICORT [Concomitant]
  16. NICODERM [Concomitant]
  17. NOVOLIN 70/30 [Concomitant]
  18. LORATADINE [Concomitant]
  19. DULOXETIME HYDROCHLORIDE [Concomitant]
  20. LEXAPRO [Concomitant]
  21. LIPITOR [Concomitant]

REACTIONS (1)
  - RESPIRATORY DISTRESS [None]
